FAERS Safety Report 20198816 (Version 1)
Quarter: 2021Q4

REPORT INFORMATION
  Report Type: Spontaneous
  Country: US (occurrence: US)
  Receive Date: 20211217
  Receipt Date: 20211217
  Transmission Date: 20220303
  Serious: Yes (Other)
  Sender: FDA-Public Use
  Company Number: US-AMGEN-USASP2021197111

PATIENT
  Sex: Male

DRUGS (1)
  1. BLINCYTO [Suspect]
     Active Substance: BLINATUMOMAB
     Indication: Acute lymphocytic leukaemia recurrent
     Dosage: 9 MICROGRAM
     Route: 065
     Dates: start: 20211206

REACTIONS (8)
  - Neurotoxicity [Unknown]
  - Altered state of consciousness [Unknown]
  - Agitation [Unknown]
  - Visual acuity reduced [Unknown]
  - Slow response to stimuli [Unknown]
  - Pyrexia [Unknown]
  - Headache [Unknown]
  - Speech disorder [Unknown]

NARRATIVE: CASE EVENT DATE: 20211208
